FAERS Safety Report 19883531 (Version 1)
Quarter: 2021Q3

REPORT INFORMATION
  Report Type: Spontaneous
  Country: US (occurrence: US)
  Receive Date: 20210927
  Receipt Date: 20210927
  Transmission Date: 20211014
  Serious: No
  Sender: FDA-Public Use
  Company Number: US-JNJFOC-20210929863

PATIENT
  Age: 77 Year
  Sex: Female

DRUGS (2)
  1. WOMENS ROGAINE UNSCENTED [Suspect]
     Active Substance: MINOXIDIL
     Indication: ALOPECIA
     Dosage: DOSE:3 TO 4 SQUIRTS OF THE CAN.
     Route: 061
     Dates: start: 202109
  2. THYROXINE [Concomitant]
     Active Substance: LEVOTHYROXINE

REACTIONS (2)
  - Incorrect dose administered [Unknown]
  - Dandruff [Unknown]

NARRATIVE: CASE EVENT DATE: 202109
